FAERS Safety Report 18869946 (Version 1)
Quarter: 2021Q1

REPORT INFORMATION
  Report Type: Spontaneous
  Country: US (occurrence: US)
  Receive Date: 20210209
  Receipt Date: 20210209
  Transmission Date: 20210420
  Serious: Yes (Other)
  Sender: FDA-Public Use
  Company Number: US-FRESENIUS KABI-FK202101364

PATIENT
  Sex: Female
  Weight: 55 kg

DRUGS (3)
  1. GENTAMICIN (MANUFACTURER UNKNOWN) [Suspect]
     Active Substance: GENTAMICIN
     Route: 033
     Dates: start: 20210115, end: 20210127
  2. GENTAMICIN. [Suspect]
     Active Substance: GENTAMICIN
     Indication: PERITONITIS
     Route: 033
     Dates: start: 20210114, end: 20210114
  3. GENTAMICIN (MANUFACTURER UNKNOWN) [Suspect]
     Active Substance: GENTAMICIN
     Indication: PERITONITIS
     Route: 065
     Dates: start: 20210109, end: 20210113

REACTIONS (2)
  - Vertigo [Not Recovered/Not Resolved]
  - Intentional product use issue [Unknown]
